FAERS Safety Report 17395399 (Version 3)
Quarter: 2021Q4

REPORT INFORMATION
  Report Type: Spontaneous
  Country: FR (occurrence: FR)
  Receive Date: 20200210
  Receipt Date: 20211206
  Transmission Date: 20220303
  Serious: Yes (Death, Hospitalization, Other)
  Sender: FDA-Public Use
  Company Number: FR-BAYER-2015-453122

PATIENT
  Age: 71 Year
  Sex: Male

DRUGS (48)
  1. POLYETHYLENE GLYCOL 3350 [Suspect]
     Active Substance: POLYETHYLENE GLYCOL 3350
     Indication: Product used for unknown indication
     Dosage: UNK, QD
     Route: 048
  2. POLYETHYLENE GLYCOL 3350 [Suspect]
     Active Substance: POLYETHYLENE GLYCOL 3350
     Indication: Product used for unknown indication
     Dosage: UNK
  3. RAMIPRIL [Suspect]
     Active Substance: RAMIPRIL
     Dosage: 5 MG, QD
     Route: 048
  4. CLOBAZAM [Suspect]
     Active Substance: CLOBAZAM
     Dosage: 10 MG, TID
     Route: 048
  5. CLOBAZAM [Suspect]
     Active Substance: CLOBAZAM
     Dosage: 30 UNK
     Route: 048
  6. ZOPICLONE [Suspect]
     Active Substance: ZOPICLONE
     Dosage: 15 MG,QD
     Route: 048
  7. LASIX [Suspect]
     Active Substance: FUROSEMIDE
     Dosage: 40 MG,QD
     Route: 048
  8. PROPRANOLOL [Suspect]
     Active Substance: PROPRANOLOL HYDROCHLORIDE
     Dosage: 20 MG, QD
     Route: 048
  9. ACETAMINOPHEN [Suspect]
     Active Substance: ACETAMINOPHEN
     Dosage: 20 MG, QD
     Route: 048
  10. ACETAMINOPHEN [Suspect]
     Active Substance: ACETAMINOPHEN
     Dosage: 200 MG, BID
     Route: 048
  11. ACETAMINOPHEN [Suspect]
     Active Substance: ACETAMINOPHEN
     Dosage: 1000 MG, 2X/DAY (ONCE EVERY 12HOURS)
     Route: 048
  12. VERAPAMIL HYDROCHLORIDE [Suspect]
     Active Substance: VERAPAMIL HYDROCHLORIDE
     Dosage: 240 MG, UNK
     Route: 048
  13. CELEBREX [Suspect]
     Active Substance: CELECOXIB
  14. CELEBREX [Suspect]
     Active Substance: CELECOXIB
     Dosage: UNK
     Route: 065
  15. SIMVASTATIN [Suspect]
     Active Substance: SIMVASTATIN
     Dosage: 20 MG, QD
     Route: 048
  16. PREDNAZOLINE [Suspect]
     Active Substance: PREDNAZOLINE
     Dosage: 1 PUFF,, QD
     Route: 045
  17. ACETAMINOPHEN [Suspect]
     Active Substance: ACETAMINOPHEN
     Dosage: 1000 MG, BID
     Route: 048
  18. ACETAMINOPHEN [Suspect]
     Active Substance: ACETAMINOPHEN
     Dosage: 100 UNK
     Route: 048
  19. CLONAZEPAM [Suspect]
     Active Substance: CLONAZEPAM
     Dosage: 4 MG, QD
     Route: 048
  20. PIPAMPERONE [Suspect]
     Active Substance: PIPAMPERONE
     Dosage: 20 MG,QD
     Route: 048
  21. TRIHEXYPHENIDYL [Suspect]
     Active Substance: TRIHEXYPHENIDYL
     Dosage: UNK UNK, QD
     Route: 048
  22. SALMETEROL XINAFOATE [Suspect]
     Active Substance: SALMETEROL XINAFOATE
     Dosage: 1 PUFF , BID
     Route: 045
  23. MIANSERIN HYDROCHLORIDE [Suspect]
     Active Substance: MIANSERIN HYDROCHLORIDE
     Dosage: 60 MG,QD
     Route: 048
  24. ALBUTEROL SULFATE [Suspect]
     Active Substance: ALBUTEROL SULFATE
     Route: 045
  25. ALBUTEROL SULFATE [Suspect]
     Active Substance: ALBUTEROL SULFATE
     Dosage: UNK
     Route: 045
  26. NITROGLYCERIN [Suspect]
     Active Substance: NITROGLYCERIN
     Dosage: 10 MG, QD
  27. NITROGLYCERIN [Suspect]
     Active Substance: NITROGLYCERIN
     Dosage: 10 MG, QD
     Route: 048
  28. DIACEREIN [Suspect]
     Active Substance: DIACEREIN
     Dosage: 50 MG, BID
     Route: 048
  29. DIACEREIN [Suspect]
     Active Substance: DIACEREIN
     Dosage: 50 MG, 2X/DAY (ONCE EVERY 12HOURS)
     Route: 048
  30. ASPIRIN [Suspect]
     Active Substance: ASPIRIN
     Dosage: 250 MG, QD
     Route: 048
  31. NITROGLYCERIN [Suspect]
     Active Substance: NITROGLYCERIN
     Dosage: 10 MG,QD
     Route: 062
  32. OMEPRAZOLE MAGNESIUM [Suspect]
     Active Substance: OMEPRAZOLE MAGNESIUM
     Dosage: 20 MG, QD
     Route: 048
  33. ISOPTIN [Suspect]
     Active Substance: VERAPAMIL HYDROCHLORIDE
     Dosage: 240 MG,QD
     Route: 048
  34. ESOMEPRAZOLE MAGNESIUM [Suspect]
     Active Substance: ESOMEPRAZOLE MAGNESIUM
     Dosage: 20 MG, QD
     Route: 048
  35. PREDNAZOLINE [Suspect]
     Active Substance: PREDNAZOLINE
     Dosage: 1 DF, 1X/DAY
     Route: 045
  36. CLOBAZAM [Suspect]
     Active Substance: CLOBAZAM
     Dosage: 30 MG, TID
     Route: 048
  37. CLOBAZAM [Suspect]
     Active Substance: CLOBAZAM
     Dosage: 10 MG, 3X/DAY (ONCE EVERY 8HOURS)
     Route: 048
  38. TRIHEXYPHENIDYL HYDROCHLORIDE [Suspect]
     Active Substance: TRIHEXYPHENIDYL HYDROCHLORIDE
     Dosage: 1 MG, QD
     Route: 048
  39. ALTACE [Suspect]
     Active Substance: RAMIPRIL
     Dosage: 5 MG,QD
     Route: 048
  40. PROPRANOLOL HYDROCHLORIDE [Suspect]
     Active Substance: PROPRANOLOL HYDROCHLORIDE
     Dosage: 20 MG,QD
     Route: 048
  41. SEREVENT DISKUS [Suspect]
     Active Substance: SALMETEROL XINAFOATE
     Dosage: 1 DF,BID (1 PUFF) (ONCE EVERY 12HOURS)
     Route: 045
  42. SEREVENT DISKUS [Suspect]
     Active Substance: SALMETEROL XINAFOATE
     Dosage: 2 DF, BID
     Route: 065
  43. ASPIRIN DL-LYSINE [Suspect]
     Active Substance: ASPIRIN DL-LYSINE
     Dosage: 20 MG,QD
     Route: 048
  44. ASPIRIN DL-LYSINE [Suspect]
     Active Substance: ASPIRIN DL-LYSINE
     Dosage: 250 MG, QD
     Route: 048
  45. ZOCOR [Suspect]
     Active Substance: SIMVASTATIN
     Dosage: 20 MG,QD
     Route: 048
  46. RIVOTRIL [Suspect]
     Active Substance: CLONAZEPAM
     Dosage: 4 MG,QD
     Route: 048
  47. OXYGEN [Concomitant]
     Active Substance: OXYGEN
  48. OXYGEN [Concomitant]
     Active Substance: OXYGEN
     Dosage: UNK

REACTIONS (14)
  - Cerebrovascular accident [Fatal]
  - Ischaemic stroke [Fatal]
  - Respiratory distress [Fatal]
  - Facial paralysis [Unknown]
  - Hemiplegia [Fatal]
  - Cerebral artery thrombosis [Fatal]
  - Respiratory failure [Fatal]
  - Nausea [Fatal]
  - Areflexia [Fatal]
  - Brain scan abnormal [Fatal]
  - Disease recurrence [Fatal]
  - Off label use [Fatal]
  - Product administered to patient of inappropriate age [Fatal]
  - Facial paralysis [Fatal]
